FAERS Safety Report 8460322-4 (Version None)
Quarter: 2012Q2

REPORT INFORMATION
  Report Type: 
  Country: None (occurrence: None)
  Receive Date: 20120622
  Receipt Date: 20120618
  Transmission Date: 20120825
  Serious: Yes (Death, Hospitalization)
  Sender: FDA-Public Use
  Company Number: US-PFIZER INC-2012104747

PATIENT
  Sex: Male
  Weight: 106 kg

DRUGS (16)
  1. VITAMIN B-12 [Concomitant]
     Dosage: UNK
  2. VITAMIN D [Concomitant]
     Dosage: 1000 MG, 1X/DAY
  3. ACETYLSALICYLIC ACID [Concomitant]
     Dosage: 81 MG, 1X/DAY
  4. LISINOPRIL [Concomitant]
     Dosage: 40 MG, 1X/DAY
  5. SPIRIVA [Concomitant]
     Dosage: EVERY MORNING
  6. IPRATROPIUM BROMIDE AND ALBUTEROL SULFATE [Concomitant]
     Dosage: UNK
  7. SIMVASTATIN [Concomitant]
     Dosage: 80 MG, 1X/DAY
  8. CARVEDILOL [Concomitant]
     Dosage: 125 MG, 2X/DAY
  9. DOXAZOSIN [Concomitant]
     Dosage: 4 MG, 1X/DAY
  10. OMEGA 3 PLUS D3 FISH OIL [Concomitant]
     Dosage: 1000 MG, 2X/DAY
  11. PLAVIX [Concomitant]
     Dosage: 75 MG, 1X/DAY
  12. FORADIL [Concomitant]
     Dosage: UNK
  13. REVATIO [Suspect]
     Indication: PULMONARY HYPERTENSION
     Dosage: 20 MG, 3X/DAY
     Route: 048
     Dates: start: 20111101
  14. GLYBURIDE [Concomitant]
     Dosage: 5 MG, 2X/DAY
  15. METFORMIN HYDROCHLORIDE [Concomitant]
     Dosage: 1000 MG, 2X/DAY
  16. FINASTERIDE [Concomitant]
     Dosage: 5 MG, 1X/DAY

REACTIONS (2)
  - ANAEMIA [None]
  - CHRONIC OBSTRUCTIVE PULMONARY DISEASE [None]
